FAERS Safety Report 8614450 (Version 2)
Quarter: 2012Q4

REPORT INFORMATION
  Report Type: 
  Country: ES (occurrence: ES)
  Receive Date: 20120614
  Receipt Date: 20121120
  Transmission Date: 20130627
  Serious: Yes (Death, Hospitalization, Other)
  Sender: FDA-Public Use
  Company Number: ES-ELI_LILLY_AND_COMPANY-ES201206002183

PATIENT
  Sex: Female

DRUGS (1)
  1. FORSTEO [Suspect]
     Dosage: UNK
     Route: 065
     Dates: start: 201202

REACTIONS (3)
  - Multi-organ failure [Fatal]
  - Central nervous system infection [Unknown]
  - Systemic lupus erythematosus [Unknown]
